FAERS Safety Report 8886815 (Version 1)
Quarter: 2012Q4

REPORT INFORMATION
  Report Type: 
  Country: US (occurrence: US)
  Receive Date: 20121105
  Receipt Date: 20121105
  Transmission Date: 20130627
  Serious: Yes (Hospitalization, Disabling, Other)
  Sender: FDA-Public Use
  Company Number: US-009507513-0704USA05975

PATIENT

DRUGS (3)
  1. FOSAMAX [Suspect]
     Indication: OSTEOPOROSIS
     Dosage: 70 mg, QW
     Route: 048
     Dates: start: 20011004, end: 20060601
  2. FOSAMAX [Suspect]
     Indication: OSTEOPENIA
  3. PREMPRO [Concomitant]
     Indication: PRODUCT USED FOR UNKNOWN INDICATION
     Dosage: UNK mg, UNK
     Dates: start: 2002, end: 2006

REACTIONS (26)
  - Febrile infection [Unknown]
  - Osteonecrosis of jaw [Unknown]
  - Osteomyelitis [Not Recovered/Not Resolved]
  - Abdominal distension [Unknown]
  - Flatulence [Unknown]
  - Frequent bowel movements [Unknown]
  - Anxiety [Not Recovered/Not Resolved]
  - Pain in extremity [Unknown]
  - Hyperlipidaemia [Unknown]
  - Liver function test abnormal [Unknown]
  - Diarrhoea [Unknown]
  - Arthropathy [Unknown]
  - Skin lesion [Not Recovered/Not Resolved]
  - Dermatitis [Unknown]
  - Granuloma [Unknown]
  - Chest pain [Unknown]
  - Rhinitis [Unknown]
  - Laryngitis [Unknown]
  - Osteoarthritis [Unknown]
  - Haemorrhoidal haemorrhage [Unknown]
  - Bunion [Unknown]
  - Foot deformity [Unknown]
  - Ligament sprain [Unknown]
  - Tooth extraction [Unknown]
  - Biopsy bone [Unknown]
  - Anger [Not Recovered/Not Resolved]
